FAERS Safety Report 5266166-9 (Version None)
Quarter: 2007Q1

REPORT INFORMATION
  Report Type: 
  Country: None (occurrence: None)
  Receive Date: 20070315
  Receipt Date: 20070313
  Transmission Date: 20070707
  Serious: Yes (Death, Other)
  Sender: FDA-Public Use
  Company Number: JP-JNJFOC-20070204168

PATIENT
  Sex: Male

DRUGS (10)
  1. ITRACONAZOLE [Suspect]
     Indication: BRONCHOPULMONARY ASPERGILLOSIS
     Route: 041
     Dates: start: 20070215, end: 20070216
  2. DIGOSIN [Interacting]
     Indication: ARRHYTHMIA SUPRAVENTRICULAR
     Route: 048
  3. HERBESSER [Concomitant]
     Indication: ARRHYTHMIA SUPRAVENTRICULAR
     Route: 048
  4. DASEN [Concomitant]
     Indication: CHRONIC OBSTRUCTIVE PULMONARY DISEASE
     Route: 048
  5. PENTCILLIN [Concomitant]
     Indication: BRONCHOPULMONARY ASPERGILLOSIS
     Route: 065
  6. PENTCILLIN [Concomitant]
     Indication: CHRONIC OBSTRUCTIVE PULMONARY DISEASE
     Route: 065
  7. NEOPHYLLIN [Concomitant]
     Indication: CHRONIC OBSTRUCTIVE PULMONARY DISEASE
     Route: 041
  8. ZANTAC [Concomitant]
     Indication: GASTRITIS EROSIVE
     Route: 041
  9. HARNAL [Concomitant]
     Indication: BENIGN PROSTATIC HYPERPLASIA
     Route: 048
  10. RHYTHMY [Concomitant]
     Indication: INSOMNIA
     Route: 048

REACTIONS (5)
  - ABNORMAL BEHAVIOUR [None]
  - CONVULSION [None]
  - DRUG INTERACTION [None]
  - SPEECH DISORDER [None]
  - STUPOR [None]
